FAERS Safety Report 9556781 (Version 2)
Quarter: 2013Q4

REPORT INFORMATION
  Report Type: Spontaneous
  Country: US (occurrence: US)
  Receive Date: 20130926
  Receipt Date: 20131115
  Transmission Date: 20140711
  Serious: No
  Sender: FDA-Public Use
  Company Number: US-PFIZER INC-2013275723

PATIENT
  Age: 65 Year
  Sex: Female
  Weight: 52.15 kg

DRUGS (3)
  1. ADVIL [Suspect]
     Indication: ARTHRALGIA
     Dosage: 200 MG, DAILY
     Dates: start: 2013, end: 201309
  2. BYSTOLIC [Concomitant]
     Indication: HYPERTENSION
     Dosage: UNK, DAILY
  3. LOSARTAN [Concomitant]
     Indication: HYPERTENSION
     Dosage: UNK, TWO TIMES A DAY

REACTIONS (1)
  - Drug ineffective [Unknown]
